FAERS Safety Report 10369102 (Version 1)
Quarter: 2014Q3

REPORT INFORMATION
  Report Type: Report from Study
  Country: BR (occurrence: BR)
  Receive Date: 20140807
  Receipt Date: 20140807
  Transmission Date: 20150326
  Serious: Yes (Other)
  Sender: FDA-Public Use
  Company Number: BR-US-EMD SERONO, INC.-7310070

PATIENT
  Sex: Female

DRUGS (1)
  1. REBIF [Suspect]
     Active Substance: INTERFERON BETA-1A
     Indication: MULTIPLE SCLEROSIS
     Route: 065
     Dates: start: 20130808

REACTIONS (4)
  - Normal newborn [Recovered/Resolved]
  - Failed induction of labour [Recovered/Resolved]
  - Exposure via father [Recovered/Resolved]
  - Foetal malposition [Recovered/Resolved]

NARRATIVE: CASE EVENT DATE: 20140627
